FAERS Safety Report 23584604 (Version 4)
Quarter: 2024Q2

REPORT INFORMATION
  Report Type: Spontaneous
  Country: JP (occurrence: JP)
  Receive Date: 20240301
  Receipt Date: 20240610
  Transmission Date: 20240715
  Serious: Yes (Other)
  Sender: FDA-Public Use
  Company Number: JP-ASTELLAS-2024JP001283

PATIENT

DRUGS (2)
  1. XOSPATA [Suspect]
     Active Substance: GILTERITINIB
     Indication: Product used for unknown indication
     Route: 048
  2. XOSPATA [Suspect]
     Active Substance: GILTERITINIB
     Route: 048

REACTIONS (2)
  - White blood cell count decreased [Recovered/Resolved]
  - Full blood count decreased [Unknown]
